FAERS Safety Report 15950806 (Version 1)
Quarter: 2019Q1

REPORT INFORMATION
  Report Type: Spontaneous
  Country: US (occurrence: US)
  Receive Date: 20190212
  Receipt Date: 20190212
  Transmission Date: 20190417
  Serious: Yes (Hospitalization, Other)
  Sender: FDA-Public Use
  Company Number: US-PFIZER INC-2019053802

PATIENT
  Age: 63 Year
  Sex: Female
  Weight: 75.74 kg

DRUGS (2)
  1. NORPACE CR [Suspect]
     Active Substance: DISOPYRAMIDE PHOSPHATE
     Indication: ARRHYTHMIA
     Dosage: 300 MG, DAILY [THREE 100MG CAPSULE MORNING AT NIGHT]
     Dates: start: 201808
  2. AMOXICILLIN. [Interacting]
     Active Substance: AMOXICILLIN
     Indication: UPPER RESPIRATORY TRACT INFECTION
     Dosage: 500 MG, 3X/DAY
     Dates: start: 20190108, end: 20190113

REACTIONS (5)
  - Hip fracture [Recovered/Resolved with Sequelae]
  - Drug interaction [Unknown]
  - Intentional product misuse [Unknown]
  - Femur fracture [Unknown]
  - Drug ineffective [Recovered/Resolved]

NARRATIVE: CASE EVENT DATE: 201808
